FAERS Safety Report 8129391-5 (Version None)
Quarter: 2012Q1

REPORT INFORMATION
  Report Type: 
  Country: None (occurrence: None)
  Receive Date: 20120210
  Receipt Date: 20120206
  Transmission Date: 20120608
  Serious: Yes (Other)
  Sender: FDA-Public Use
  Company Number: US-BAYER-2012-012149

PATIENT
  Sex: Female

DRUGS (3)
  1. JANUVIA [Concomitant]
  2. PRECOSE [Suspect]
  3. METFORMIN HCL [Suspect]

REACTIONS (1)
  - BLOOD GLUCOSE INCREASED [None]
